FAERS Safety Report 19899094 (Version 4)
Quarter: 2023Q4

REPORT INFORMATION
  Report Type: Report from Study
  Country: US (occurrence: US)
  Receive Date: 20210929
  Receipt Date: 20231211
  Transmission Date: 20240110
  Serious: Yes (Other)
  Sender: FDA-Public Use
  Company Number: US-KYOWAKIRIN-2021BKK016105

PATIENT

DRUGS (7)
  1. BUROSUMAB [Suspect]
     Active Substance: BUROSUMAB
     Indication: Hereditary hypophosphataemic rickets
     Dosage: 80 MG, 1X/4 WEEKS STRENGTH 30 MG AND 20 MG COMBINED TO ACHIEVE DOSE OF 80 MG
     Route: 058
     Dates: start: 20200630
  2. BUROSUMAB [Suspect]
     Active Substance: BUROSUMAB
     Dosage: 50 MG(STRENGTH 20 AND 30 MG/ML COMBINED TO ACHIEVE DOSE OF 50 MG, EVERY 4 WEEKS)
     Route: 058
  3. BUROSUMAB [Suspect]
     Active Substance: BUROSUMAB
     Dosage: 50 MG(STRENGTH 20 AND 30 MG/ML COMBINED TO ACHIEVE DOSE OF 50 MG, EVERY 4 WEEKS)
     Route: 058
     Dates: start: 20220713
  4. BUROSUMAB [Suspect]
     Active Substance: BUROSUMAB
     Indication: Hereditary hypophosphataemic rickets
     Dosage: 80 MG, 1X/4 WEEKS STRENGTH 30 MG AND 20 MG COMBINED TO ACHIEVE DOSE OF 80 MG
     Route: 058
     Dates: start: 20200630
  5. BUROSUMAB [Suspect]
     Active Substance: BUROSUMAB
     Dosage: 50 MG, 1X/4 WEEKS (STRENGTH 20 AND 30 MG/ML COMBINED TO ACHIEVE DOSE OF 50 MG, EVERY 4 WEEKS)
     Route: 058
  6. BUROSUMAB [Suspect]
     Active Substance: BUROSUMAB
     Dosage: 50 MG, 1X/4 WEEKS (STRENGTH 20 AND 30 MG/ML COMBINED TO ACHIEVE DOSE OF 50 MG, EVERY 4 WEEKS)
     Route: 058
     Dates: start: 20220713
  7. BUROSUMAB [Suspect]
     Active Substance: BUROSUMAB
     Indication: Product used for unknown indication
     Dosage: UNK, 1X/4 WEEKS
     Route: 065
     Dates: start: 20220713

REACTIONS (7)
  - Myocardial infarction [Unknown]
  - Weight increased [Unknown]
  - Blood calcium increased [Unknown]
  - Blood parathyroid hormone increased [Unknown]
  - Blood phosphorus decreased [Unknown]
  - Blood 25-hydroxycholecalciferol decreased [Unknown]
  - Therapy cessation [Unknown]

NARRATIVE: CASE EVENT DATE: 20210901
